FAERS Safety Report 5872451-X (Version None)
Quarter: 2008Q3

REPORT INFORMATION
  Report Type: 
  Country: None (occurrence: None)
  Receive Date: 20080905
  Receipt Date: 20080828
  Transmission Date: 20090109
  Serious: Yes (Other)
  Sender: FDA-Public Use
  Company Number: PHHY2008US18681

PATIENT
  Sex: Male
  Weight: 91 kg

DRUGS (8)
  1. EXJADE [Suspect]
     Indication: BLOOD DISORDER
     Dosage: 1500 MG/DAY
     Route: 048
     Dates: start: 20080806
  2. ASPIRIN [Concomitant]
     Dosage: 81 MG DAILY
     Route: 048
  3. BACTRIM DS [Concomitant]
     Route: 048
  4. FOLIC ACID [Concomitant]
     Route: 048
  5. LOPRESSOR [Concomitant]
     Dosage: 50 MG, BID
     Route: 048
  6. OMEPRAZOLE [Concomitant]
     Dosage: 20 MG DAILY
     Route: 048
  7. TYLENOL (CAPLET) [Concomitant]
     Dosage: 1000 MG
     Route: 048
  8. LOPID [Concomitant]
     Route: 048

REACTIONS (2)
  - DIARRHOEA HAEMORRHAGIC [None]
  - TRANSFUSION [None]
